FAERS Safety Report 10010565 (Version 1)
Quarter: 2014Q1

REPORT INFORMATION
  Report Type: Spontaneous
  Country: GB (occurrence: CN)
  Receive Date: 20140314
  Receipt Date: 20140314
  Transmission Date: 20141002
  Serious: Yes (Hospitalization, Other)
  Sender: FDA-Public Use
  Company Number: GB-009507513-1403CHN002537

PATIENT
  Sex: Female

DRUGS (1)
  1. INTRONA [Suspect]
     Dosage: 4 MG, UNK

REACTIONS (11)
  - Myelofibrosis [Unknown]
  - Intestinal obstruction [Unknown]
  - Neoplasm malignant [Unknown]
  - Eating disorder [Unknown]
  - Dysuria [Unknown]
  - Lymphadenopathy [Unknown]
  - Hypersensitivity [Unknown]
  - Pyrexia [Unknown]
  - Depression [Unknown]
  - Rash generalised [Unknown]
  - Rash [Unknown]
